FAERS Safety Report 7780951-0 (Version None)
Quarter: 2011Q3

REPORT INFORMATION
  Report Type: 
  Country: None (occurrence: None)
  Receive Date: 20110923
  Receipt Date: 20110912
  Transmission Date: 20111222
  Serious: Yes (Hospitalization)
  Sender: FDA-Public Use
  Company Number: TCI2011A03850

PATIENT
  Age: 79 Year
  Sex: Male

DRUGS (6)
  1. AMARYL [Concomitant]
  2. NORVASC [Concomitant]
  3. DIOVAN [Concomitant]
  4. OMEPRAZOLE [Concomitant]
  5. ACTOS [Suspect]
     Indication: DIABETES MELLITUS
     Dosage: 15 MG (15 MG, 1 IN 1 D)
     Route: 048
     Dates: start: 20100406, end: 20110701
  6. PRAVASTATIN [Concomitant]

REACTIONS (2)
  - URINE ABNORMALITY [None]
  - URETERIC CANCER [None]
